FAERS Safety Report 4537574-6 (Version None)
Quarter: 2004Q4

REPORT INFORMATION
  Report Type: 
  Country: None (occurrence: None)
  Receive Date: 20041214
  Receipt Date: 20040913
  Transmission Date: 20050328
  Serious: Yes (Other)
  Sender: FDA-Public Use
  Company Number: 10061787-NC025916-1

PATIENT
  Age: 20 Year
  Sex: Female
  Weight: 49.9 kg

DRUGS (6)
  1. VANCOCIN HCL [Suspect]
     Indication: STAPHYLOCOCCAL INFECTION
     Dosage: 1G, Q 12 HOURS, IV
     Route: 042
     Dates: start: 20040910
  2. TOBRAMYCIN [Concomitant]
  3. PERCOCET [Concomitant]
  4. MORPHINE [Concomitant]
  5. CLINDAMYCIN HCL [Concomitant]
  6. PHENERGAN [Concomitant]

REACTIONS (4)
  - RASH ERYTHEMATOUS [None]
  - RASH GENERALISED [None]
  - RASH PAPULAR [None]
  - RASH PRURITIC [None]
